FAERS Safety Report 4787746-0 (Version None)
Quarter: 2005Q3

REPORT INFORMATION
  Report Type: 
  Country: None (occurrence: None)
  Receive Date: 20050926
  Receipt Date: 20050803
  Transmission Date: 20060218
  Serious: Yes (Hospitalization)
  Sender: FDA-Public Use
  Company Number: 216632

PATIENT
  Age: 48 Year
  Sex: Male
  Weight: 89 kg

DRUGS (3)
  1. AVASTIN [Suspect]
     Indication: PSEUDOMYXOMA PERITONEI
     Dosage: 670 MG, Q3W, INTRAVENOUS
     Route: 042
     Dates: start: 20050715
  2. OXALIPLATIN (OXALIPLATIN) [Concomitant]
  3. ALOXIA (PALONOSETRON) [Concomitant]

REACTIONS (3)
  - CELLULITIS [None]
  - PYREXIA [None]
  - WOUND DEHISCENCE [None]
